FAERS Safety Report 8661896 (Version 2)
Quarter: 2013Q4

REPORT INFORMATION
  Report Type: Spontaneous
  Country: FR (occurrence: FR)
  Receive Date: 20120712
  Receipt Date: 20131101
  Transmission Date: 20140711
  Serious: Yes (Disabling)
  Sender: FDA-Public Use
  Company Number: FR-009507513-1207FRA00006

PATIENT
  Sex: Male
  Weight: 85 kg

DRUGS (9)
  1. ISENTRESS [Suspect]
     Indication: OESOPHAGITIS
     Dosage: 400 MG, BID
     Route: 048
     Dates: start: 200906
  2. INTELENCE [Suspect]
     Indication: HIV INFECTION
     Dosage: 2 U, BID
     Route: 048
     Dates: start: 200906
  3. INIPOMP [Suspect]
     Indication: OESOPHAGITIS
     Dosage: 40 MG, BID
     Route: 048
  4. TRIATEC (RAMIPRIL) [Concomitant]
     Route: 048
  5. ALLOPURINOL [Concomitant]
     Route: 048
  6. BISOPROLOL [Concomitant]
     Route: 048
  7. LAMISIL (TERBINAFINE) [Concomitant]
  8. EZETROL [Concomitant]
     Dosage: 10 MG, QD
  9. UVEDOSE [Concomitant]
     Route: 048

REACTIONS (1)
  - Neuropathy peripheral [Not Recovered/Not Resolved]
